FAERS Safety Report 17692277 (Version 1)
Quarter: 2020Q2

REPORT INFORMATION
  Report Type: Spontaneous
  Country: US (occurrence: US)
  Receive Date: 20200422
  Receipt Date: 20200422
  Transmission Date: 20200714
  Serious: No
  Sender: FDA-Public Use
  Company Number: US-PFIZER INC-2020157127

PATIENT
  Age: 51 Year
  Sex: Female
  Weight: 49.44 kg

DRUGS (3)
  1. EUCRISA [Suspect]
     Active Substance: CRISABOROLE
     Dosage: UNK, 1X/DAY (AT BEDTIME-WHEN SHE GOES TO SLEEP OR WHEN SHE GOES TO BED)
  2. EUCRISA [Suspect]
     Active Substance: CRISABOROLE
     Indication: ECZEMA
     Dosage: UNK, 2X/DAY
  3. VASELINE [PARAFFIN] [Concomitant]
     Active Substance: PARAFFIN
     Indication: ECZEMA
     Dosage: UNK

REACTIONS (7)
  - Product use in unapproved indication [Unknown]
  - Malaise [Unknown]
  - Drug effective for unapproved indication [Unknown]
  - Off label use [Unknown]
  - Cough [Unknown]
  - Plantar fasciitis [Unknown]
  - Laryngitis [Recovering/Resolving]

NARRATIVE: CASE EVENT DATE: 202003
